FAERS Safety Report 18055706 (Version 1)
Quarter: 2020Q3

REPORT INFORMATION
  Report Type: Spontaneous
  Country: FR (occurrence: FR)
  Receive Date: 20200722
  Receipt Date: 20200722
  Transmission Date: 20201103
  Serious: Yes (Death)
  Sender: FDA-Public Use
  Company Number: FR-ALLERGAN-2026743US

PATIENT
  Sex: Male

DRUGS (3)
  1. LEVOFLOXACINE KABI [Suspect]
     Active Substance: LEVOFLOXACIN
     Indication: INFECTION
     Dosage: ALSO REPORTED AS 500 MG 2/J ? 250 MG 1/J
     Route: 042
     Dates: start: 20200422, end: 20200604
  2. CEFTAZIDIME;AVIBACTAM ? BP [Suspect]
     Active Substance: AVIBACTAM SODIUM\CEFTAZIDIME
     Indication: SEPSIS
     Dosage: 6 G
     Route: 042
     Dates: start: 20200418, end: 20200605
  3. ERYTHROMYCIN LACTOBIONATE [Suspect]
     Active Substance: ERYTHROMYCIN LACTOBIONATE
     Indication: INFECTION
     Dosage: 280 MG, QD
     Route: 042
     Dates: start: 20200528, end: 20200605

REACTIONS (1)
  - Cardiogenic shock [Fatal]

NARRATIVE: CASE EVENT DATE: 20200608
